FAERS Safety Report 4696527-8 (Version None)
Quarter: 2005Q2

REPORT INFORMATION
  Report Type: 
  Country: None (occurrence: None)
  Receive Date: 20050620
  Receipt Date: 20050608
  Transmission Date: 20051028
  Serious: Yes (Hospitalization)
  Sender: FDA-Public Use
  Company Number: COV2-2005-00048

PATIENT
  Age: 35 Year
  Sex: Male
  Weight: 88 kg

DRUGS (6)
  1. FOSRENOL [Suspect]
     Indication: HYPERPHOSPHATAEMIA
     Dosage: 1500 MG 3X/DAY TID ORAL
     Route: 048
     Dates: start: 20050420, end: 20050523
  2. NORVASC/DEN/(AMLODIPINE BESILATE) [Concomitant]
  3. LABETALOL [Concomitant]
  4. NEPHROCAPS (VITAMINS NOS, FOLIC ACID) [Concomitant]
  5. MINOXIDIL [Concomitant]
  6. COMBIVENT/GFR/(SALBUTAMOL SULFATE, IPRATROPIUM BROMIDE) [Concomitant]

REACTIONS (4)
  - HYPOXIA [None]
  - PAIN [None]
  - PNEUMONIA [None]
  - STAPHYLOCOCCAL INFECTION [None]
